FAERS Safety Report 18876080 (Version 1)
Quarter: 2021Q1

REPORT INFORMATION
  Report Type: Spontaneous
  Country: GB (occurrence: GB)
  Receive Date: 20210210
  Receipt Date: 20210210
  Transmission Date: 20210420
  Serious: Yes (Other)
  Sender: FDA-Public Use
  Company Number: GB-ALLERGAN-2105969US

PATIENT
  Sex: Female
  Weight: 64 kg

DRUGS (18)
  1. DOCUSATE SODIUM. [Concomitant]
     Active Substance: DOCUSATE SODIUM
     Dosage: 4 DF, QD
     Dates: start: 20201124
  2. QVAR [Concomitant]
     Active Substance: BECLOMETHASONE DIPROPIONATE
     Dosage: 4 DF, QD
     Dates: start: 20190603
  3. TRAZODONE [Concomitant]
     Active Substance: TRAZODONE HYDROCHLORIDE
     Dosage: 2 DF, QHS
     Dates: start: 20190603
  4. CETIRIZINE [Concomitant]
     Active Substance: CETIRIZINE HYDROCHLORIDE
     Indication: PRURITUS
     Dosage: 1 DF, QD
     Dates: start: 20201214, end: 20210113
  5. LORAZEPAM. [Concomitant]
     Active Substance: LORAZEPAM
     Dosage: 1?2 PER DAY
     Dates: start: 20190603
  6. MORPHINE SULFATE. [Concomitant]
     Active Substance: MORPHINE SULFATE
     Dosage: 2.5 ML, PRN
     Dates: start: 20201229
  7. FEXOFENADINE [Concomitant]
     Active Substance: FEXOFENADINE HYDROCHLORIDE
     Dosage: 1 DF, QD
     Dates: start: 20201221, end: 20210120
  8. VENTOLINE [Concomitant]
     Active Substance: ALBUTEROL
     Dosage: 2 DF, PRN
     Route: 055
     Dates: start: 20190603
  9. MACROGOL [Concomitant]
     Active Substance: POLYETHYLENE GLYCOLS
     Indication: CONSTIPATION PROPHYLAXIS
     Dosage: 2 DF, QD
     Dates: start: 20201214
  10. TRAMADOL. [Concomitant]
     Active Substance: TRAMADOL
     Dosage: 4 DF, QD
     Dates: start: 20200226
  11. FOSFOMYCIN TROMETHAMINE ? BP [Suspect]
     Active Substance: FOSFOMYCIN TROMETHAMINE
     Indication: PRODUCT USED FOR UNKNOWN INDICATION
     Dosage: 3 G, QD
     Dates: start: 20210120
  12. ABASAGLAR [Concomitant]
     Active Substance: INSULIN GLARGINE
     Indication: DIABETES MELLITUS
     Dosage: 10 IU, QD
     Dates: start: 20190603
  13. SENNA [Concomitant]
     Active Substance: SENNA LEAF\SENNOSIDES\SENNOSIDES A AND B
     Dosage: 2 DF, QHS
     Dates: start: 20201124, end: 20201214
  14. CARBIMAZOLE [Concomitant]
     Active Substance: CARBIMAZOLE
     Dosage: 1 DF, QD
     Dates: start: 20201124
  15. MICONAZOLE. [Concomitant]
     Active Substance: MICONAZOLE
     Dosage: 2 DF, QD
     Dates: start: 20210122
  16. CHLORHEXIDINE GLUCONATE. [Concomitant]
     Active Substance: CHLORHEXIDINE GLUCONATE
     Dosage: UNK
     Dates: start: 20201224, end: 20201231
  17. FUSIDIC ACID [Concomitant]
     Active Substance: FUSIDIC ACID
     Dosage: 3 DF, QD
     Dates: start: 20201126, end: 20201203
  18. LACTULOSE. [Concomitant]
     Active Substance: LACTULOSE
     Indication: CONSTIPATION
     Dosage: 60 ML, QD
     Dates: start: 20201124, end: 20201214

REACTIONS (5)
  - Lip swelling [Unknown]
  - Dyspnoea [Unknown]
  - Hypersensitivity [Unknown]
  - Urticaria [Recovering/Resolving]
  - Overdose [Unknown]

NARRATIVE: CASE EVENT DATE: 20210125
